FAERS Safety Report 14144772 (Version 2)
Quarter: 2017Q4

REPORT INFORMATION
  Report Type: Spontaneous
  Country: CA (occurrence: CA)
  Receive Date: 20171031
  Receipt Date: 20171108
  Transmission Date: 20180321
  Serious: Yes (Other)
  Sender: FDA-Public Use
  Company Number: CA-ASTRAZENECA-2017SF06555

PATIENT
  Sex: Female

DRUGS (2)
  1. LYNPARZA [Suspect]
     Active Substance: OLAPARIB
     Indication: DISEASE RECURRENCE
     Route: 048
     Dates: start: 201610, end: 20161130
  2. LYNPARZA [Suspect]
     Active Substance: OLAPARIB
     Indication: DISEASE RECURRENCE
     Route: 048
     Dates: start: 20161222

REACTIONS (1)
  - Salivary hypersecretion [Recovered/Resolved]
